FAERS Safety Report 6444660-2 (Version None)
Quarter: 2009Q4

REPORT INFORMATION
  Report Type: 
  Country: None (occurrence: None)
  Receive Date: 20091118
  Receipt Date: 20091113
  Transmission Date: 20100525
  Serious: Yes (Death)
  Sender: FDA-Public Use
  Company Number: US-GILEAD-2009-0025431

PATIENT
  Sex: Male
  Weight: 86.714 kg

DRUGS (14)
  1. LETAIRIS [Suspect]
     Indication: PULMONARY ARTERIAL HYPERTENSION
     Dates: start: 20090325
  2. ZOCOR [Concomitant]
  3. LASIX [Concomitant]
  4. ADCIRCA [Concomitant]
  5. COMBIVENT [Concomitant]
  6. ALBUTEROL [Concomitant]
  7. TEMAZEPAM [Concomitant]
  8. GLIPIZIDE [Concomitant]
  9. METFORMIN HCL [Concomitant]
  10. ASPIRIN [Concomitant]
  11. LUPRON [Concomitant]
  12. POTASSIUM CHLORIDE [Concomitant]
  13. ADVIL [Concomitant]
  14. MULTI-VITAMINS [Concomitant]

REACTIONS (1)
  - DEATH [None]
